FAERS Safety Report 24964973 (Version 1)
Quarter: 2025Q1

REPORT INFORMATION
  Report Type: Spontaneous
  Country: AU (occurrence: AU)
  Receive Date: 20250213
  Receipt Date: 20250213
  Transmission Date: 20250409
  Serious: Yes (Other)
  Sender: PFIZER
  Company Number: AU-PFIZER INC-202500033210

PATIENT
  Age: 19 Year
  Sex: Female
  Weight: 60 kg

DRUGS (8)
  1. METHOTREXATE SODIUM [Suspect]
     Active Substance: METHOTREXATE SODIUM
     Indication: Juvenile idiopathic arthritis
     Dosage: 10 MG, WEEKLY
  2. METHOTREXATE SODIUM [Suspect]
     Active Substance: METHOTREXATE SODIUM
     Indication: Polyarthritis
  3. HUMIRA [Concomitant]
     Active Substance: ADALIMUMAB
     Indication: Juvenile idiopathic arthritis
  4. HUMIRA [Concomitant]
     Active Substance: ADALIMUMAB
     Indication: Polyarthritis
  5. HUMIRA [Concomitant]
     Active Substance: ADALIMUMAB
     Indication: Uveitis
  6. INFLIXIMAB [Concomitant]
     Active Substance: INFLIXIMAB
     Indication: Juvenile idiopathic arthritis
  7. INFLIXIMAB [Concomitant]
     Active Substance: INFLIXIMAB
     Indication: Polyarthritis
  8. INFLIXIMAB [Concomitant]
     Active Substance: INFLIXIMAB
     Indication: Uveitis

REACTIONS (1)
  - Uveitis [Not Recovered/Not Resolved]
